FAERS Safety Report 7256827-4 (Version None)
Quarter: 2011Q1

REPORT INFORMATION
  Report Type: 
  Country: None (occurrence: None)
  Receive Date: 20110129
  Receipt Date: 20100713
  Transmission Date: 20110831
  Serious: No
  Sender: FDA-Public Use
  Company Number: US-ABBOTT-10P-163-0652253-00

PATIENT
  Age: 49 Year
  Sex: Female

DRUGS (28)
  1. COUMADIN [Concomitant]
     Indication: THROMBOSIS
  2. NASALNEX [Concomitant]
     Indication: HYPERSENSITIVITY
     Dosage: 2 SPRAYS EACH NOSTRIL DAILY
  3. POTASSIUM [Concomitant]
     Indication: HYPOKALAEMIA
  4. CYMBALTA [Concomitant]
     Indication: DEPRESSION
  5. FOLIC ACID [Concomitant]
     Indication: ARTHRITIS
  6. CLONAZEPAM [Concomitant]
     Indication: PANIC ATTACK
  7. TYLENOL (CAPLET) [Concomitant]
     Indication: PAIN
  8. PETROLEUM JELLY [Concomitant]
     Indication: ASTHENIA
  9. PROTONIX [Concomitant]
     Indication: IRRITABLE BOWEL SYNDROME
  10. JANUVIA [Concomitant]
     Indication: ARTHRITIS
  11. HUMIRA [Suspect]
     Indication: RHEUMATOID ARTHRITIS
     Dates: start: 20100614
  12. ADVAIR DISK 550 [Concomitant]
     Indication: ASTHMA
  13. LASIX [Concomitant]
     Indication: CARDIAC FAILURE CONGESTIVE
  14. TOPROL-XL [Concomitant]
     Indication: CARDIAC DISORDER
  15. FLEXERIL [Concomitant]
     Indication: PAIN
  16. KETOCONAZOLE [Concomitant]
     Indication: ALOPECIA
  17. ALBUTEROL [Concomitant]
     Indication: ASTHMA
  18. SINGULAIR [Concomitant]
     Indication: HYPERSENSITIVITY
  19. REVATIO [Concomitant]
     Indication: LUNG DISORDER
  20. KETOCONAZOLE [Concomitant]
     Indication: ADVERSE DRUG REACTION
  21. METHOTREXATE [Concomitant]
     Indication: ARTHRITIS
  22. NORVASC [Concomitant]
     Indication: HYPERTENSION
  23. LOVENOX [Concomitant]
     Indication: SURGERY
  24. GAS-X [Concomitant]
     Indication: ABDOMINAL DISTENSION
     Dosage: THREE TIMES A DAY WITH MEALS
  25. AMLODIPINE BESYLATE [Concomitant]
     Indication: HYPERTENSION
  26. GLIPIZIDE [Concomitant]
     Indication: DIABETES MELLITUS
  27. LOVENOX [Concomitant]
     Indication: INTERNATIONAL NORMALISED RATIO DECREASED
     Dosage: 120MG/0.8ML-150MG/ML AS NEEDED
  28. LISINOPRIL [Concomitant]
     Indication: HYPERTENSION

REACTIONS (2)
  - INJECTION SITE PAIN [None]
  - URTICARIA [None]
